FAERS Safety Report 19490364 (Version 1)
Quarter: 2021Q3

REPORT INFORMATION
  Report Type: Spontaneous
  Country: US (occurrence: US)
  Receive Date: 20210705
  Receipt Date: 20210705
  Transmission Date: 20211014
  Serious: Yes (Life-Threatening, Hospitalization, Other)
  Sender: FDA-Public Use
  Company Number: US-GLENMARK PHARMACEUTICALS-2021GMK066447

PATIENT
  Age: 22 Year
  Sex: Female

DRUGS (2)
  1. DIPHENHYDRAMINE HYDROCHLORIDE. [Suspect]
     Active Substance: DIPHENHYDRAMINE HYDROCHLORIDE
     Indication: PRODUCT USED FOR UNKNOWN INDICATION
     Dosage: 240 COMBINATION CAPLETS OF NAPROXEN SODIUM 220 MG AND DIPHENHYDRAMINE HYDROCHLORIDE 25 MG
     Route: 048
  2. NAPROXEN. [Suspect]
     Active Substance: NAPROXEN
     Indication: PRODUCT USED FOR UNKNOWN INDICATION
     Dosage: 240 COMBINATION CAPLETS OF NAPROXEN SODIUM 220 MG AND DIPHENHYDRAMINE HYDROCHLORIDE 25 MG
     Route: 048

REACTIONS (5)
  - Mental status changes [Unknown]
  - Hypotension [Unknown]
  - Status epilepticus [Unknown]
  - Tachycardia [Unknown]
  - Intentional overdose [Unknown]
